FAERS Safety Report 5286049-8 (Version None)
Quarter: 2007Q2

REPORT INFORMATION
  Report Type: 
  Country: None (occurrence: None)
  Receive Date: 20070404
  Receipt Date: 20070328
  Transmission Date: 20071010
  Serious: Yes (Hospitalization)
  Sender: FDA-Public Use
  Company Number: FR-BAXTER-2007BH002861

PATIENT
  Age: 64 Year
  Sex: Male
  Weight: 94 kg

DRUGS (1)
  1. EXTRANEAL [Suspect]
     Indication: RENAL FAILURE
     Dosage: DOSE UNIT:UNKNOWN
     Route: 033
     Dates: start: 20050501

REACTIONS (3)
  - ANOREXIA [None]
  - DIARRHOEA [None]
  - PERITONITIS [None]
